FAERS Safety Report 5377253-9 (Version None)
Quarter: 2007Q3

REPORT INFORMATION
  Report Type: 
  Country: None (occurrence: None)
  Receive Date: 20070703
  Receipt Date: 20070622
  Transmission Date: 20080115
  Serious: No
  Sender: FDA-Public Use
  Company Number: US-ELI_LILLY_AND_COMPANY-US200705004291

PATIENT
  Age: 72 Year
  Sex: Female
  Weight: 53.061 kg

DRUGS (1)
  1. FORTEO [Suspect]
     Indication: OSTEOPOROSIS
     Dosage: 20 UG, DAILY (1/D)
     Dates: start: 20051101

REACTIONS (3)
  - NERVOUSNESS [None]
  - TREMOR [None]
  - VISUAL DISTURBANCE [None]
